FAERS Safety Report 5170454-4 (Version None)
Quarter: 2006Q4

REPORT INFORMATION
  Report Type: 
  Country: None (occurrence: None)
  Receive Date: 20061204
  Receipt Date: 20061115
  Transmission Date: 20070319
  Serious: Yes (Hospitalization)
  Sender: FDA-Public Use
  Company Number: 2006AD000089

PATIENT
  Age: 16 Year
  Sex: Male

DRUGS (1)
  1. CEPHALEXIN [Suspect]
     Indication: PARONYCHIA
     Dosage: 750 MG; BID;PO
     Route: 048

REACTIONS (10)
  - AFFECT LABILITY [None]
  - AKATHISIA [None]
  - AMNESIA [None]
  - CONFUSIONAL STATE [None]
  - CRYING [None]
  - DELIRIUM [None]
  - DISORIENTATION [None]
  - FATIGUE [None]
  - INDIFFERENCE [None]
  - PSYCHOTIC DISORDER [None]
